FAERS Safety Report 15238074 (Version 1)
Quarter: 2018Q3

REPORT INFORMATION
  Report Type: Spontaneous
  Country: US (occurrence: US)
  Receive Date: 20180710
  Receipt Date: 20180710
  Transmission Date: 20181010
  Serious: Yes (Hospitalization)
  Sender: FDA-Public Use
  Company Number: None

PATIENT
  Sex: Female

DRUGS (11)
  1. VITAMIN E [Concomitant]
     Active Substance: .ALPHA.-TOCOPHEROL
  2. ENALAPRIL [Concomitant]
     Active Substance: ENALAPRIL
  3. MULTILEX [Concomitant]
  4. ROCEPHIN [Concomitant]
     Active Substance: CEFTRIAXONE SODIUM
  5. TYLENOL [Concomitant]
     Active Substance: ACETAMINOPHEN
  6. LONSURF [Suspect]
     Active Substance: TIPIRACIL HYDROCHLORIDE\TRIFLURIDINE
     Indication: NEOPLASM MALIGNANT
     Route: 048
     Dates: start: 20180601
  7. DIPHENHYDRAM [Concomitant]
  8. VITAMIN D [Concomitant]
     Active Substance: CHOLECALCIFEROL
  9. METOPROLOL. [Concomitant]
     Active Substance: METOPROLOL
  10. ELIQUIS [Concomitant]
     Active Substance: APIXABAN
  11. IMODIUM [Concomitant]
     Active Substance: LOPERAMIDE HYDROCHLORIDE

REACTIONS (7)
  - Diarrhoea [None]
  - Back pain [None]
  - Nausea [None]
  - Migraine [None]
  - Fatigue [None]
  - Headache [None]
  - Pyrexia [None]
